FAERS Safety Report 20169131 (Version 1)
Quarter: 2021Q4

REPORT INFORMATION
  Report Type: Spontaneous
  Country: US (occurrence: None)
  Receive Date: 20211209
  Receipt Date: 20211209
  Transmission Date: 20220303
  Serious: Yes (Hospitalization)
  Sender: FDA-Public Use
  Company Number: None

PATIENT
  Sex: Female
  Weight: 67.9 kg

DRUGS (2)
  1. BEVACIZUMAB [Suspect]
     Active Substance: BEVACIZUMAB
  2. LIPOSOMAL DOXORUBICIN (DOXIL) [Concomitant]

REACTIONS (2)
  - Abdominal pain [None]
  - Small intestinal obstruction [None]

NARRATIVE: CASE EVENT DATE: 20211203
